FAERS Safety Report 8840661 (Version 1)
Quarter: 2012Q4

REPORT INFORMATION
  Report Type: 
  Country: IT (occurrence: IT)
  Receive Date: 20121015
  Receipt Date: 20121015
  Transmission Date: 20130627
  Serious: Yes (Hospitalization)
  Sender: FDA-Public Use
  Company Number: IT-PFIZER INC-2012254050

PATIENT
  Age: 26 Year
  Sex: Female

DRUGS (2)
  1. XANAX [Suspect]
     Indication: INTENTIONAL SELF-INJURY
     Dosage: 4.5 mg, single
     Route: 048
     Dates: start: 20120919, end: 20120919
  2. LEXOTAN [Suspect]
     Indication: INTENTIONAL SELF-INJURY
     Dosage: 24 drops, single dose
     Route: 048
     Dates: start: 20120919, end: 20120919

REACTIONS (2)
  - Sopor [Recovering/Resolving]
  - Drug abuse [Recovering/Resolving]
